FAERS Safety Report 4458994-4 (Version None)
Quarter: 2004Q3

REPORT INFORMATION
  Report Type: 
  Country: None (occurrence: None)
  Receive Date: 20040923
  Receipt Date: 20040923
  Transmission Date: 20050211
  Serious: Yes (Other)
  Sender: FDA-Public Use
  Company Number: None

PATIENT
  Age: 25 Year
  Sex: Male
  Weight: 144.2439 kg

DRUGS (3)
  1. EFFEXOR XR [Suspect]
     Indication: ANXIETY
     Dosage: 1 PILL DAILY (75 MG)
     Dates: start: 20040601
  2. EFFEXOR XR [Suspect]
     Indication: DEPRESSION
     Dosage: 1 PILL DAILY (75 MG)
     Dates: start: 20040601
  3. DIOVAN [Suspect]
     Indication: HYPERTENSION
     Dosage: 1 PILL DAILY

REACTIONS (7)
  - ANXIETY [None]
  - BLOOD PRESSURE INCREASED [None]
  - DIZZINESS [None]
  - HORMONE LEVEL ABNORMAL [None]
  - INCREASED APPETITE [None]
  - INSOMNIA [None]
  - MICTURITION DISORDER [None]
